FAERS Safety Report 9207535 (Version 2)
Quarter: 2013Q4

REPORT INFORMATION
  Report Type: Report from Study
  Country: AU (occurrence: AU)
  Receive Date: 20130403
  Receipt Date: 20131107
  Transmission Date: 20140711
  Serious: Yes (Other)
  Sender: FDA-Public Use
  Company Number: AU-ROCHE-1209021

PATIENT
  Age: 78 Year
  Sex: Male

DRUGS (2)
  1. RANIBIZUMAB [Suspect]
     Indication: AGE-RELATED MACULAR DEGENERATION
     Route: 050
     Dates: start: 20121121
  2. RANIBIZUMAB [Suspect]
     Route: 050
     Dates: start: 20130116

REACTIONS (4)
  - Retinal pigment epithelial tear [Recovering/Resolving]
  - Eye haemorrhage [Recovering/Resolving]
  - Visual acuity reduced [Unknown]
  - Drug effect decreased [Unknown]
